FAERS Safety Report 5780840-7 (Version None)
Quarter: 2008Q2

REPORT INFORMATION
  Report Type: 
  Country: None (occurrence: None)
  Receive Date: 20080618
  Receipt Date: 20080609
  Transmission Date: 20081010
  Serious: Yes (Hospitalization)
  Sender: FDA-Public Use
  Company Number: GXKR2008US05271

PATIENT
  Age: 63 Year
  Sex: Male

DRUGS (2)
  1. METRONIDAZOLE [Suspect]
     Dosage: 500 MG, Q6H, ORAL
     Route: 048
  2. VANCOMYCIN [Concomitant]

REACTIONS (9)
  - ABASIA [None]
  - AREFLEXIA [None]
  - CEREBELLAR ATAXIA [None]
  - FALL [None]
  - GAIT DISTURBANCE [None]
  - NEUROTOXICITY [None]
  - NYSTAGMUS [None]
  - PALLANAESTHESIA [None]
  - PUPILLARY REFLEX IMPAIRED [None]
